FAERS Safety Report 9513983 (Version 1)
Quarter: 2013Q3

REPORT INFORMATION
  Report Type: Spontaneous
  Country: FR (occurrence: FR)
  Receive Date: 20130910
  Receipt Date: 20130910
  Transmission Date: 20140515
  Serious: Yes (Death, Hospitalization, Other)
  Sender: FDA-Public Use
  Company Number: FR-ELI_LILLY_AND_COMPANY-FR201308009944

PATIENT
  Age: 62 Year
  Sex: Male
  Weight: 57 kg

DRUGS (10)
  1. CYMBALTA [Suspect]
     Indication: DEPRESSION
     Dosage: 60 MG, QD
     Route: 048
  2. XARELTO [Suspect]
     Indication: DEEP VEIN THROMBOSIS
     Dosage: 15 MG, BID
     Route: 048
     Dates: start: 20130611, end: 20130613
  3. XARELTO [Suspect]
     Dosage: 20 MG, QD
     Route: 048
     Dates: start: 20130614, end: 20130718
  4. STILNOX [Concomitant]
     Dosage: 10 MG, QD
     Route: 065
     Dates: end: 20130719
  5. PARIET [Concomitant]
     Dosage: 20 MG, QD
     Route: 065
     Dates: end: 20130719
  6. SPASFON [Concomitant]
     Dosage: UNK, UNKNOWN
     Route: 065
  7. DEXERYL [Concomitant]
     Dosage: UNK, OTHER
     Route: 065
  8. CETORNAN [Concomitant]
     Dosage: 10 G, UNKNOWN
     Route: 065
  9. LYCOPODIUM CLAVATUM [Concomitant]
     Dosage: 5 DF, QD
     Route: 065
  10. CARDUUS MARIANUS [Concomitant]
     Dosage: 2 DF, QD
     Route: 065

REACTIONS (15)
  - Paraneoplastic syndrome [Fatal]
  - Pancreatic carcinoma metastatic [Fatal]
  - Myocardial infarction [Fatal]
  - Gastrointestinal haemorrhage [Fatal]
  - Deep vein thrombosis [Unknown]
  - Portal hypertension [Unknown]
  - Pulmonary embolism [Unknown]
  - Pulmonary arterial hypertension [Unknown]
  - Varices oesophageal [Unknown]
  - Jaundice cholestatic [Unknown]
  - Weight decreased [Unknown]
  - General physical health deterioration [Unknown]
  - Pain [Unknown]
  - Tachycardia [Unknown]
  - Gastritis [Unknown]
